FAERS Safety Report 6483659-7 (Version None)
Quarter: 2009Q4

REPORT INFORMATION
  Report Type: 
  Country: None (occurrence: None)
  Receive Date: 20091209
  Receipt Date: 20091202
  Transmission Date: 20100525
  Serious: Yes (Hospitalization)
  Sender: FDA-Public Use
  Company Number: JP-ASTRAZENECA-2009SE29328

PATIENT
  Age: 92 Year
  Sex: Male

DRUGS (2)
  1. ZOLADEX [Suspect]
     Indication: PROSTATE CANCER
     Route: 058
  2. URSO 250 [Concomitant]
     Route: 048

REACTIONS (3)
  - ASCITES [None]
  - HEPATIC FUNCTION ABNORMAL [None]
  - PERITONITIS [None]
